FAERS Safety Report 20931755 (Version 2)
Quarter: 2022Q3

REPORT INFORMATION
  Report Type: Spontaneous
  Country: US (occurrence: US)
  Receive Date: 20220608
  Receipt Date: 20220805
  Transmission Date: 20221027
  Serious: No
  Sender: FDA-Public Use
  Company Number: US-GSKCCFUS-Case-01399518_AE-80635

PATIENT
  Age: 86 Year
  Sex: Female

DRUGS (1)
  1. ARNUITY ELLIPTA [Suspect]
     Active Substance: FLUTICASONE FUROATE
     Indication: Product used for unknown indication
     Dosage: UNK
     Dates: start: 20211201

REACTIONS (2)
  - Dizziness [Not Recovered/Not Resolved]
  - Oral candidiasis [Unknown]

NARRATIVE: CASE EVENT DATE: 20220201
